FAERS Safety Report 9891271 (Version 3)
Quarter: 2014Q2

REPORT INFORMATION
  Report Type: Spontaneous
  Country: GB (occurrence: None)
  Receive Date: 20140210
  Receipt Date: 20140623
  Transmission Date: 20141212
  Serious: Yes (Other)
  Sender: FDA-Public Use
  Company Number: 2014GR_BP000755

PATIENT
  Age: 64 Year
  Sex: Male
  Weight: 76 kg

DRUGS (5)
  1. TAMSULOSIN [Suspect]
     Indication: PROSTATE CANCER
     Route: 048
     Dates: start: 20130507
  2. VESICARE (SOLIFENACIN SUCCINATE) [Suspect]
     Indication: MICTURITION URGENCY
     Route: 048
     Dates: start: 20130625, end: 20131025
  3. FINASTERIDE (FINASTERIDE) [Concomitant]
  4. SIMVASTATIN (SIMVASTATIN) [Concomitant]
  5. MADOPAR (LEVODOPA, BENSERAZIDE HYDROCHLORIDE) [Concomitant]

REACTIONS (2)
  - Hallucination [None]
  - Parkinson^s disease [None]
